FAERS Safety Report 9640942 (Version 1)
Quarter: 2013Q4

REPORT INFORMATION
  Report Type: Report from Study
  Country: DE (occurrence: DE)
  Receive Date: 20131023
  Receipt Date: 20131023
  Transmission Date: 20140711
  Serious: Yes (Other)
  Sender: FDA-Public Use
  Company Number: DE-SA-2013SA104103

PATIENT
  Age: 80 Year
  Sex: Female
  Weight: 88 kg

DRUGS (8)
  1. MULTAQ [Suspect]
     Indication: ATRIAL FIBRILLATION
     Route: 065
     Dates: start: 20121002
  2. AMLODIPINE [Concomitant]
  3. VALSARTAN [Concomitant]
  4. OXYCODONE/NALOXONE [Concomitant]
  5. ALENDRONIC ACID [Concomitant]
  6. BISOPROLOL [Concomitant]
  7. BETA BLOCKING AGENTS [Concomitant]
     Dates: start: 200702
  8. VIT K ANTAGONISTS [Concomitant]
     Indication: ANTICOAGULANT THERAPY
     Dates: start: 200702

REACTIONS (1)
  - Atrial fibrillation [Unknown]
